FAERS Safety Report 9723281 (Version 2)
Quarter: 2013Q4

REPORT INFORMATION
  Report Type: Report from Study
  Country: TW (occurrence: TW)
  Receive Date: 20131202
  Receipt Date: 20131209
  Transmission Date: 20140711
  Serious: Yes (Other)
  Sender: FDA-Public Use
  Company Number: PHHY2013TW139246

PATIENT
  Age: 76 Year
  Sex: Male
  Weight: 65 kg

DRUGS (19)
  1. AMN107 [Suspect]
     Indication: CHRONIC LEUKAEMIA
     Dosage: 400 MG, DAY
     Route: 048
     Dates: start: 20111014
  2. AMN107 [Suspect]
     Dosage: 800 MG, DAILY
     Dates: start: 20111020, end: 20120213
  3. AMN107 [Suspect]
     Dosage: 400 MG, DAILY
     Dates: start: 20120214
  4. AMN107 [Suspect]
     Dosage: 600 MG, DAILY
     Dates: start: 20120320
  5. NICORANDIL [Concomitant]
     Indication: PERIPHERAL VASCULAR DISORDER
     Dates: start: 20120222, end: 20120418
  6. NICORANDIL [Concomitant]
     Indication: MYOCARDIAL ISCHAEMIA
     Dates: start: 20120613, end: 20120711
  7. NICORANDIL [Concomitant]
     Dates: start: 20121006
  8. CARVEDILOL [Concomitant]
     Indication: HYPERTENSION
     Dates: start: 20121006
  9. ATORVASTATIN [Concomitant]
     Indication: HYPERLIPIDAEMIA
     Dates: start: 20131101
  10. DIFLUCORTOLONE VALERATE [Concomitant]
     Indication: SKIN IRRITATION
     Dates: start: 20111227, end: 20120124
  11. DIFLUCORTOLONE VALERATE [Concomitant]
     Dates: start: 20120214, end: 20120221
  12. DIFLUCORTOLONE VALERATE [Concomitant]
     Dates: start: 20120330, end: 20120416
  13. DIFLUCORTOLONE VALERATE [Concomitant]
     Dates: start: 20120417, end: 20120424
  14. DIFLUCORTOLONE VALERATE [Concomitant]
     Dates: start: 20120515, end: 20120522
  15. DIFLUCORTOLONE VALERATE [Concomitant]
     Dates: start: 20120710, end: 20120717
  16. DIFLUCORTOLONE VALERATE [Concomitant]
     Dates: start: 20120904, end: 20120911
  17. DIFLUCORTOLONE VALERATE [Concomitant]
     Dates: start: 20121030, end: 20121106
  18. DIFLUCORTOLONE VALERATE [Concomitant]
     Dates: start: 20121127
  19. BETAMETHASONE [Concomitant]
     Indication: SKIN LESION
     Dates: start: 20120904, end: 20121030

REACTIONS (1)
  - Electrocardiogram QT prolonged [Recovered/Resolved]
